FAERS Safety Report 4678204-2 (Version None)
Quarter: 2005Q2

REPORT INFORMATION
  Report Type: 
  Country: None (occurrence: None)
  Receive Date: 20050601
  Receipt Date: 20050523
  Transmission Date: 20051028
  Serious: Yes (Hospitalization, Other)
  Sender: FDA-Public Use
  Company Number: PHNU2005DE02034

PATIENT
  Age: 54 Year
  Sex: Female

DRUGS (4)
  1. CORTISONE [Concomitant]
     Route: 065
  2. MIRTAZAPINE [Concomitant]
     Route: 065
  3. STEROIDS NOS [Concomitant]
     Indication: RENAL TRANSPLANT
     Route: 065
     Dates: start: 19950101
  4. SANDIMMUNE [Suspect]
     Indication: RENAL TRANSPLANT
     Dosage: UNK, UNK
     Route: 065
     Dates: start: 19950101

REACTIONS (6)
  - CEREBRAL DISORDER [None]
  - CEREBRAL INFARCTION [None]
  - EPILEPSY [None]
  - MENTAL DISORDER [None]
  - VASCULAR ENCEPHALOPATHY [None]
  - VASCULITIS [None]
